FAERS Safety Report 5831556-X (Version None)
Quarter: 2008Q3

REPORT INFORMATION
  Report Type: 
  Country: None (occurrence: None)
  Receive Date: 20080801
  Receipt Date: 20080722
  Transmission Date: 20090109
  Serious: Yes (Other)
  Sender: FDA-Public Use
  Company Number: JP-PFIZER INC-2008062052

PATIENT
  Age: 8 Year
  Sex: Female

DRUGS (13)
  1. UNASYN [Suspect]
     Indication: PNEUMONIA
     Route: 042
     Dates: start: 20080624, end: 20080625
  2. DANTRIUM [Concomitant]
     Route: 048
  3. TEGRETOL [Concomitant]
     Route: 048
  4. BACLOFEN [Concomitant]
     Route: 048
  5. DIAZEPAM [Concomitant]
  6. GASMOTIN [Concomitant]
     Route: 048
  7. MONILAC [Concomitant]
     Route: 048
  8. FAMOTIDINE [Concomitant]
  9. WAKOBITAL [Concomitant]
  10. TRICLORYL [Concomitant]
     Route: 048
  11. ORGARAN [Concomitant]
     Route: 042
  12. ANTITHROMBOTIC AGENTS [Concomitant]
     Route: 042
  13. IMMUNE GLOBULIN INTRAVENOUS (HUMAN) [Concomitant]
     Route: 042

REACTIONS (1)
  - LIVER DISORDER [None]
